FAERS Safety Report 6532455-0 (Version None)
Quarter: 2010Q1

REPORT INFORMATION
  Report Type: 
  Country: None (occurrence: None)
  Receive Date: 20100111
  Receipt Date: 20100104
  Transmission Date: 20100710
  Serious: Yes (Other)
  Sender: FDA-Public Use
  Company Number: GB-RANBAXY-2008RR-17911

PATIENT
  Age: 37 Year
  Sex: Female

DRUGS (3)
  1. DOXICIN [Suspect]
     Indication: ENDOMETRIOSIS
  2. FLAGYL [Suspect]
     Indication: ENDOMETRIOSIS
     Dosage: 1200 MG, QD
     Route: 048
     Dates: start: 20080717, end: 20080724
  3. DOXYCYCLINE [Concomitant]

REACTIONS (2)
  - DRUG EXPOSURE DURING PREGNANCY [None]
  - ULTRASOUND ANTENATAL SCREEN ABNORMAL [None]
